FAERS Safety Report 9870618 (Version 1)
Quarter: 2014Q1

REPORT INFORMATION
  Report Type: Spontaneous
  Country: IN (occurrence: IN)
  Receive Date: 20140205
  Receipt Date: 20140205
  Transmission Date: 20141002
  Serious: Yes (Other)
  Sender: FDA-Public Use
  Company Number: PHHY2014IN012831

PATIENT
  Age: 55 Year
  Sex: Male

DRUGS (6)
  1. DICLOFENAC [Suspect]
     Indication: ARTHRITIS
     Route: 048
  2. PREDNISOLONE [Suspect]
  3. LEFLUNOMIDE [Suspect]
     Indication: ARTHRITIS
  4. ALLOPURINOL [Suspect]
     Indication: ARTHRITIS
  5. METHOTREXATE [Suspect]
     Indication: ARTHRITIS
  6. HYDROXYCHLOROQUINE [Suspect]
     Indication: ARTHRITIS

REACTIONS (8)
  - Lepromatous leprosy [Unknown]
  - Hypersensitivity [Recovering/Resolving]
  - Urticaria [Recovering/Resolving]
  - Macule [Unknown]
  - Rash papular [Unknown]
  - Erythema [Unknown]
  - Pruritus [Unknown]
  - Skin lesion [Recovering/Resolving]
